FAERS Safety Report 7601618-5 (Version None)
Quarter: 2011Q3

REPORT INFORMATION
  Report Type: 
  Country: None (occurrence: None)
  Receive Date: 20110711
  Receipt Date: 20110630
  Transmission Date: 20111222
  Serious: Yes (Hospitalization)
  Sender: FDA-Public Use
  Company Number: PHHY2011US57008

PATIENT
  Sex: Female

DRUGS (5)
  1. GILENYA [Suspect]
     Dosage: 0.5 MG, QD
     Route: 048
     Dates: start: 20110617, end: 20110617
  2. IMURAN [Concomitant]
     Dosage: UNK UKN, UNK
  3. GABAPENTIN [Concomitant]
     Dosage: UNK UKN, UNK
  4. LEVOTHYROXINE SODIUM [Concomitant]
     Dosage: UNK UKN, UNK
  5. AMITRIPTYLINE HCL [Concomitant]
     Dosage: UNK UKN, UNK

REACTIONS (3)
  - HEART RATE DECREASED [None]
  - BLOOD PRESSURE DECREASED [None]
  - CHEST PAIN [None]
